FAERS Safety Report 6336859-0 (Version None)
Quarter: 2009Q3

REPORT INFORMATION
  Report Type: 
  Country: None (occurrence: None)
  Receive Date: 20090901
  Receipt Date: 20090827
  Transmission Date: 20100115
  Serious: Yes (Other)
  Sender: FDA-Public Use
  Company Number: US-JNJCH-2009023082

PATIENT
  Age: 57 Year
  Sex: Female
  Weight: 52.6 kg

DRUGS (4)
  1. TUCKS HYDROCORTISONE ANTI-ITCH OINTMENT [Suspect]
     Indication: PRURITUS
     Dosage: TEXT:UNSPECIFIED ONCE
     Route: 061
     Dates: start: 20090824, end: 20090825
  2. EVISTA [Concomitant]
     Indication: OSTEOPOROSIS
     Dosage: TEXT:1 DAILY
     Route: 065
  3. XYZAL [Concomitant]
     Indication: HYPERSENSITIVITY
     Dosage: TEXT:1 DAILY
     Route: 065
  4. CLONAZEPAM [Concomitant]
     Indication: INSOMNIA
     Dosage: TEXT:2MG 2 DAILY UNSPECIFIED
     Route: 065

REACTIONS (3)
  - APPLICATION SITE IRRITATION [None]
  - PRODUCT TAMPERING [None]
  - RECTAL HAEMORRHAGE [None]
